FAERS Safety Report 8929568 (Version 3)
Quarter: 2013Q1

REPORT INFORMATION
  Report Type: Spontaneous
  Country: US (occurrence: None)
  Receive Date: 20121120
  Receipt Date: 20130122
  Transmission Date: 20140127
  Serious: Yes (Other)
  Sender: FDA-Public Use
  Company Number: 2012-0887

PATIENT
  Age: 60 Year
  Sex: Male

DRUGS (9)
  1. KYPROLIS [Suspect]
     Indication: PLASMA CELL MYELOMA
     Dosage: 11.4286 MG (40 MG, 2 IN 1 WK)
     Route: 042
     Dates: start: 20120912, end: 20121018
  2. OXYMETAZOLINE NASAL SPRAY (OXYMETAZOLINE) (NASAL SPRAY) [Concomitant]
  3. KEPPRA (LEVETIRACETAM) (LEVETIRACETAM) [Concomitant]
  4. LAMICTAL (LAMOTRIGINE) (LAMOTRIGINE) [Concomitant]
  5. MIRALAX (MACROGOL) (MACROGOL) [Concomitant]
  6. MILK OF MAGNESIA (MAGNESIUM HHYDROXIDE) (MAGNESIUM HYDROXIDE) [Concomitant]
  7. CLARITHROMYCIN (CLARITHROMYCIN) [Concomitant]
  8. CITALOPRAM (CITALOPRAM) [Concomitant]
  9. DILANTIN (PHENYTOIN) (PHENYTOIN) [Concomitant]

REACTIONS (5)
  - Somnolence [None]
  - Somnolence [None]
  - Tongue disorder [None]
  - Gait disturbance [None]
  - Convulsion [None]
